FAERS Safety Report 15566206 (Version 1)
Quarter: 2018Q4

REPORT INFORMATION
  Report Type: Spontaneous
  Country: IL (occurrence: IL)
  Receive Date: 20181030
  Receipt Date: 20181030
  Transmission Date: 20190205
  Serious: Yes (Other)
  Sender: FDA-Public Use
  Company Number: IL-ROCHE-2173958

PATIENT
  Age: 49 Year
  Sex: Male

DRUGS (7)
  1. AMARYL [Concomitant]
     Active Substance: GLIMEPIRIDE
  2. GEMZAR [Suspect]
     Active Substance: GEMCITABINE HYDROCHLORIDE
     Route: 065
  3. XELODA [Suspect]
     Active Substance: CAPECITABINE
     Route: 065
  4. METFORMIN HYDROCHLORIDE. [Concomitant]
     Active Substance: METFORMIN HYDROCHLORIDE
  5. GEMZAR [Suspect]
     Active Substance: GEMCITABINE HYDROCHLORIDE
     Indication: PANCREATIC CARCINOMA
     Route: 065
     Dates: end: 20171212
  6. XELODA [Suspect]
     Active Substance: CAPECITABINE
     Indication: PANCREATIC CARCINOMA
     Route: 065
     Dates: end: 20171212
  7. ALPHA LIPOIC ACID [Concomitant]
     Active Substance: .ALPHA.-LIPOIC ACID

REACTIONS (10)
  - Nausea [Unknown]
  - Hepatic function abnormal [Recovered/Resolved]
  - Neuropathy peripheral [Recovering/Resolving]
  - Weight decreased [Unknown]
  - Loss of consciousness [Unknown]
  - Iron deficiency anaemia [Unknown]
  - Diarrhoea [Recovered/Resolved]
  - Pancytopenia [Unknown]
  - Syncope [Unknown]
  - Liver injury [Unknown]

NARRATIVE: CASE EVENT DATE: 201804
